FAERS Safety Report 5831823-X (Version None)
Quarter: 2008Q3

REPORT INFORMATION
  Report Type: 
  Country: None (occurrence: None)
  Receive Date: 20080804
  Receipt Date: 20080725
  Transmission Date: 20090109
  Serious: Yes (Other)
  Sender: FDA-Public Use
  Company Number: PH-JNJFOC-20080706500

PATIENT
  Age: 7 Year
  Sex: Female

DRUGS (1)
  1. MEBENDAZOLE [Suspect]
     Indication: HELMINTHIC INFECTION

REACTIONS (2)
  - LOSS OF CONSCIOUSNESS [None]
  - URTICARIA [None]
